FAERS Safety Report 6057821-1 (Version None)
Quarter: 2009Q1

REPORT INFORMATION
  Report Type: 
  Country: None (occurrence: None)
  Receive Date: 20090129
  Receipt Date: 20090119
  Transmission Date: 20090719
  Serious: Yes (Disabling, Other)
  Sender: FDA-Public Use
  Company Number: CA-ELI_LILLY_AND_COMPANY-CA200811002782

PATIENT
  Age: 50 Year
  Sex: Female
  Weight: 70.295 kg

DRUGS (3)
  1. CYMBALTA [Suspect]
     Dosage: 30 MG, UNK
     Dates: start: 20080529, end: 20080821
  2. CYMBALTA [Suspect]
     Dosage: 120 MG, UNK
     Dates: start: 20080821, end: 20081026
  3. IRON SULFATETHIAMIN COMPOUND TAB [Concomitant]
     Dosage: 300 MG, DAILY (1/D)
     Route: 048
     Dates: start: 20081001, end: 20081027

REACTIONS (7)
  - ATAXIA [None]
  - DERMATITIS BULLOUS [None]
  - DRUG WITHDRAWAL SYNDROME [None]
  - MENORRHAGIA [None]
  - MOOD ALTERED [None]
  - MYOCLONUS [None]
  - SUICIDAL IDEATION [None]
